FAERS Safety Report 23461715 (Version 1)
Quarter: 2024Q1

REPORT INFORMATION
  Report Type: Report from Study
  Country: NL (occurrence: NL)
  Receive Date: 20240131
  Receipt Date: 20240131
  Transmission Date: 20240410
  Serious: Yes (Hospitalization)
  Sender: FDA-Public Use
  Company Number: NL-AstraZeneca-2024A019303

PATIENT
  Age: 28 Month
  Sex: Male
  Weight: 11.9 kg

DRUGS (2)
  1. SYNAGIS [Suspect]
     Active Substance: PALIVIZUMAB
     Indication: Muscular dystrophy
     Dosage: MONTHLY
     Route: 030
     Dates: start: 20231218
  2. LACTULOSESTROOP [Concomitant]
     Indication: Product used for unknown indication

REACTIONS (3)
  - Respiratory syncytial virus infection [Unknown]
  - Weight decreased [Unknown]
  - Off label use [Unknown]
